FAERS Safety Report 25586489 (Version 1)
Quarter: 2025Q3

REPORT INFORMATION
  Report Type: Spontaneous
  Country: US (occurrence: US)
  Receive Date: 20250721
  Receipt Date: 20250721
  Transmission Date: 20251021
  Serious: No
  Sender: PFIZER
  Company Number: US-PFIZER INC-202500146045

PATIENT
  Age: 40 Year
  Sex: Male

DRUGS (6)
  1. CIBINQO [Suspect]
     Active Substance: ABROCITINIB
     Dosage: TAKE 1 TABLET
     Route: 048
  2. PREDNISONE [Concomitant]
     Active Substance: PREDNISONE
  3. HYDROCORT [HYDROCORTISONE] [Concomitant]
  4. MONTELUKAST [Concomitant]
     Active Substance: MONTELUKAST
  5. FLUOCINONIDE [Concomitant]
     Active Substance: FLUOCINONIDE
  6. DUPIXENT [Concomitant]
     Active Substance: DUPILUMAB

REACTIONS (1)
  - Depression [Unknown]
